FAERS Safety Report 5487113-0 (Version None)
Quarter: 2007Q4

REPORT INFORMATION
  Report Type: 
  Country: None (occurrence: None)
  Receive Date: 20071016
  Receipt Date: 20071004
  Transmission Date: 20080405
  Serious: Yes (Life-Threatening)
  Sender: FDA-Public Use
  Company Number: IT-ROCHE-522974

PATIENT
  Age: 65 Year
  Sex: Male

DRUGS (2)
  1. MYCOPHENOLATE MOFETIL [Suspect]
     Route: 048
     Dates: start: 20070828
  2. FK 506 [Suspect]
     Route: 048
     Dates: start: 20070828, end: 20070910

REACTIONS (1)
  - CEREBROVASCULAR ACCIDENT [None]
